FAERS Safety Report 17741547 (Version 1)
Quarter: 2020Q2

REPORT INFORMATION
  Report Type: Spontaneous
  Country: US (occurrence: US)
  Receive Date: 20200504
  Receipt Date: 20200504
  Transmission Date: 20200714
  Serious: Yes (Other)
  Sender: FDA-Public Use
  Company Number: US-AKORN PHARMACEUTICALS-2020AKN00570

PATIENT
  Age: 37 Year
  Sex: Male

DRUGS (1)
  1. TRIAMCINOLONE ACETONIDE. [Suspect]
     Active Substance: TRIAMCINOLONE ACETONIDE
     Dosage: INJECTION INTO THE SEPTAL MUCOSA
     Route: 065

REACTIONS (5)
  - Retinal degeneration [Unknown]
  - Maculopathy [Unknown]
  - Incorrect route of product administration [Recovered/Resolved]
  - Retinal artery occlusion [Recovering/Resolving]
  - Visual field defect [Not Recovered/Not Resolved]
